FAERS Safety Report 23926588 (Version 2)
Quarter: 2024Q2

REPORT INFORMATION
  Report Type: Spontaneous
  Country: JP (occurrence: None)
  Receive Date: 20240531
  Receipt Date: 20240613
  Transmission Date: 20240715
  Serious: Yes (Other)
  Sender: FDA-Public Use
  Company Number: 2024A125442

PATIENT
  Age: 48 Year
  Sex: Female

DRUGS (2)
  1. DURVALUMAB [Suspect]
     Active Substance: DURVALUMAB
     Indication: Small cell lung cancer metastatic
  2. PLATINUM [Concomitant]
     Active Substance: PLATINUM

REACTIONS (1)
  - Osteoarthritis [Recovered/Resolved]
